FAERS Safety Report 20085435 (Version 1)
Quarter: 2021Q4

REPORT INFORMATION
  Report Type: Spontaneous
  Country: US (occurrence: None)
  Receive Date: 20211117
  Receipt Date: 20211117
  Transmission Date: 20220303
  Serious: Yes (Other)
  Sender: FDA-Public Use
  Company Number: None

PATIENT
  Age: 60 Year
  Sex: Female
  Weight: 85.05 kg

DRUGS (1)
  1. PILOCARPINE [Suspect]
     Active Substance: PILOCARPINE
     Indication: Postoperative care
     Dosage: FREQUENCY : 3 TIMES A DAY;?
     Route: 047
     Dates: start: 2021, end: 2021

REACTIONS (3)
  - Headache [None]
  - Visual impairment [None]
  - Therapy cessation [None]

NARRATIVE: CASE EVENT DATE: 20211012
